FAERS Safety Report 4395442-7 (Version None)
Quarter: 2004Q3

REPORT INFORMATION
  Report Type: 
  Country: None (occurrence: None)
  Receive Date: 20040713
  Receipt Date: 20040702
  Transmission Date: 20050211
  Serious: Yes (Other)
  Sender: FDA-Public Use
  Company Number: PHBS2004AT08952

PATIENT

DRUGS (1)
  1. VOLTAREN [Suspect]
     Route: 030

REACTIONS (2)
  - INJECTION SITE ABSCESS STERILE [None]
  - INJECTION SITE NECROSIS [None]
